FAERS Safety Report 10902778 (Version 3)
Quarter: 2015Q4

REPORT INFORMATION
  Report Type: Report from Study
  Country: US (occurrence: US)
  Receive Date: 20150310
  Receipt Date: 20151202
  Transmission Date: 20160304
  Serious: Yes (Death, Hospitalization)
  Sender: FDA-Public Use
  Company Number: GXBR2015US000948

PATIENT
  Age: 79 Year
  Sex: Female
  Weight: 78.5 kg

DRUGS (9)
  1. ENOXAPARIN SODIUM. [Suspect]
     Active Substance: ENOXAPARIN SODIUM
     Dosage: 120 MG, QD
     Route: 058
  2. MORPHINE SULFATE. [Concomitant]
     Active Substance: MORPHINE SULFATE
     Indication: PAIN
     Dosage: 15 MG, TID
     Route: 048
     Dates: start: 20140717, end: 20150320
  3. ZOFRAN [Concomitant]
     Active Substance: ONDANSETRON HYDROCHLORIDE
     Indication: NAUSEA
     Dosage: 4 MG, PRN
     Route: 048
     Dates: start: 20140717, end: 20150320
  4. GABAPENTIN. [Concomitant]
     Active Substance: GABAPENTIN
     Indication: PAIN
     Dosage: 100 MG, QID
     Route: 048
     Dates: start: 20140717, end: 20150320
  5. ENOXAPARIN SODIUM. [Suspect]
     Active Substance: ENOXAPARIN SODIUM
     Indication: ANTICOAGULANT THERAPY
     Dosage: 80 MG, BID
     Route: 058
     Dates: start: 201305
  6. VOLTAREN [Concomitant]
     Active Substance: DICLOFENAC SODIUM
     Indication: PAIN
     Dosage: 1 %, PRN
     Route: 061
     Dates: start: 20141022, end: 20150320
  7. FAMOTIDINE. [Concomitant]
     Active Substance: FAMOTIDINE
     Indication: ULCER
     Dosage: 40 MG, QD
     Route: 048
     Dates: start: 20140717, end: 20150320
  8. B12-VITAMIIN [Concomitant]
     Indication: ANAEMIA
     Dosage: 100 UG, QMO
     Dates: start: 20140717, end: 20150320
  9. ZOFRAN [Concomitant]
     Active Substance: ONDANSETRON HYDROCHLORIDE
     Indication: VOMITING

REACTIONS (2)
  - Death [Fatal]
  - Intestinal fistula [Unknown]

NARRATIVE: CASE EVENT DATE: 20150628
